FAERS Safety Report 12583332 (Version 2)
Quarter: 2023Q1

REPORT INFORMATION
  Report Type: Spontaneous
  Country: KR (occurrence: KR)
  Receive Date: 20160722
  Receipt Date: 20230220
  Transmission Date: 20230417
  Serious: Yes (Death, Other)
  Sender: FDA-Public Use
  Company Number: KR-SA-2016SA132761

PATIENT
  Age: 40 Year
  Sex: Male

DRUGS (1)
  1. ZOLPIDEM TARTRATE [Suspect]
     Active Substance: ZOLPIDEM TARTRATE
     Indication: Insomnia
     Dosage: UNK UNK,UNK
     Route: 048

REACTIONS (7)
  - Completed suicide [Fatal]
  - Homicide [Unknown]
  - Hallucination [Unknown]
  - Amnesia [Unknown]
  - Anxiety [Unknown]
  - Somnambulism [Unknown]
  - Drug ineffective [Unknown]
